FAERS Safety Report 13570223 (Version 1)
Quarter: 2017Q2

REPORT INFORMATION
  Report Type: Report from Study
  Country: US (occurrence: US)
  Receive Date: 20170522
  Receipt Date: 20170522
  Transmission Date: 20170830
  Serious: Yes (Other)
  Sender: FDA-Public Use
  Company Number: US-ALLERGAN-1649590

PATIENT
  Age: 27 Year
  Sex: Female
  Weight: 73 kg

DRUGS (4)
  1. LEVONORGESTREL 52MG (11282X) [Suspect]
     Active Substance: LEVONORGESTREL
     Indication: CONTRACEPTION
     Dosage: 20 ?G, QD
     Route: 015
     Dates: start: 20141103, end: 20141215
  2. IBUPROFEN. [Concomitant]
     Active Substance: IBUPROFEN
     Indication: MIGRAINE
     Dosage: 400 MG, PRN
     Route: 048
     Dates: start: 20100501
  3. CLARITIN [Concomitant]
     Active Substance: LORATADINE
     Indication: ALLERGY TO ANIMAL
     Dosage: UNK
     Route: 048
     Dates: start: 20131127
  4. ADVAIR HFA [Concomitant]
     Active Substance: FLUTICASONE PROPIONATE\SALMETEROL XINAFOATE
     Indication: ALLERGY TO ANIMAL
     Dosage: 1 PUFF PRN
     Route: 055
     Dates: start: 20131127

REACTIONS (3)
  - Ectopic pregnancy [Recovered/Resolved]
  - Drug ineffective [Unknown]
  - Breast pain [None]

NARRATIVE: CASE EVENT DATE: 20141218
